FAERS Safety Report 15439941 (Version 3)
Quarter: 2020Q3

REPORT INFORMATION
  Report Type: Report from Study
  Country: US (occurrence: US)
  Receive Date: 20180928
  Receipt Date: 20200731
  Transmission Date: 20201102
  Serious: No
  Sender: FDA-Public Use
  Company Number: PHEH2018US040907

PATIENT
  Sex: Female

DRUGS (1)
  1. COSENTYX [Suspect]
     Active Substance: SECUKINUMAB
     Indication: PATERNAL EXPOSURE DURING PREGNANCY
     Dosage: UNK UNK, UNKNOWN (EXPOSURE VIA PARTNER)
     Route: 050

REACTIONS (1)
  - Exposure via partner [Unknown]
